FAERS Safety Report 8777376 (Version 1)
Quarter: 2012Q4

REPORT INFORMATION
  Report Type: 
  Country: US (occurrence: US)
  Receive Date: 20120911
  Receipt Date: 20120911
  Transmission Date: 20130627
  Serious: Yes (Other)
  Sender: FDA-Public Use
  Company Number: US-BAYER-2012-093365

PATIENT
  Age: 30 Year
  Sex: Female

DRUGS (1)
  1. MIRENA [Suspect]
     Indication: CONTRACEPTION
     Dosage: Daily dose 20 ?g
     Route: 015
     Dates: start: 200909, end: 20120726

REACTIONS (6)
  - Urinary tract infection [None]
  - Genital haemorrhage [None]
  - Vaginitis bacterial [None]
  - Migraine [None]
  - Acne [None]
  - Menstruation delayed [None]
